FAERS Safety Report 6058278-7 (Version None)
Quarter: 2009Q1

REPORT INFORMATION
  Report Type: 
  Country: None (occurrence: None)
  Receive Date: 20090123
  Receipt Date: 20081014
  Transmission Date: 20090719
  Serious: Yes (Other)
  Sender: FDA-Public Use
  Company Number: GXBR2008US01801

PATIENT
  Age: 83 Year
  Sex: Male
  Weight: 68 kg

DRUGS (2)
  1. AMIODARONE HCL [Suspect]
     Indication: ATRIAL FIBRILLATION
     Dosage: 200 MG, QD, ORAL, 100 MG, QD, ORAL
     Route: 048
     Dates: start: 19980101
  2. CARDURA [Concomitant]

REACTIONS (3)
  - ASPIRATION PLEURAL CAVITY [None]
  - DYSPNOEA [None]
  - PLEURAL EFFUSION [None]
